FAERS Safety Report 4298116-6 (Version None)
Quarter: 2004Q1

REPORT INFORMATION
  Report Type: 
  Country: None (occurrence: None)
  Receive Date: 20040218
  Receipt Date: 20021029
  Transmission Date: 20041129
  Serious: Yes (Hospitalization, Other)
  Sender: FDA-Public Use
  Company Number: US-BRISTOL-MYERS SQUIBB COMPANY-12094900

PATIENT
  Age: 25 Year
  Sex: Female
  Weight: 54 kg

DRUGS (5)
  1. STADOL [Suspect]
     Indication: MIGRAINE
     Dosage: TAKING ONE BOTTLE EVERY 4 HOURS. TOOK 1 TO 2 PUFFS ON 27-AUG AND 30-AUG-03
     Route: 045
     Dates: end: 20010801
  2. STADOL [Suspect]
     Indication: MIGRAINE
     Dosage: ^INJECTABLE FORM^
     Route: 051
  3. LOVENOX [Concomitant]
     Dosage: SELF-ADMINISTERS TWICE DAILY; CONTINUES FOR DURATION OF PREGNANCY (EDC 2/27/01).
     Dates: start: 20000101, end: 20010301
  4. COUMADIN [Concomitant]
     Dosage: CLIENT RAN LOW ON MED + CHANGED HER DOSE TO 5MG DAILY. INCREASED TO 7.5 MG DAILY ON 5/7/01
     Route: 048
     Dates: start: 20000101, end: 20010622
  5. TYLENOL (CAPLET) [Concomitant]
     Indication: HEADACHE

REACTIONS (4)
  - DEPENDENCE [None]
  - DRUG ADDICT [None]
  - DRUG EXPOSURE DURING PREGNANCY [None]
  - DRUG WITHDRAWAL HEADACHE [None]
